FAERS Safety Report 4302336-1 (Version None)
Quarter: 2004Q1

REPORT INFORMATION
  Report Type: 
  Country: None (occurrence: None)
  Receive Date: 20040126
  Receipt Date: 20031010
  Transmission Date: 20041129
  Serious: No
  Sender: FDA-Public Use
  Company Number: USA031049570

PATIENT
  Age: 6 Year
  Sex: Female
  Weight: 25 kg

DRUGS (4)
  1. STRATTERA [Suspect]
     Indication: ATTENTION DEFICIT/HYPERACTIVITY DISORDER
     Dosage: 10 MG/DAY
     Dates: start: 20031007
  2. CLONIDINE [Concomitant]
  3. ORAPRED (PERDNISOLONE) [Concomitant]
  4. ADVAIR DISKUS 100/50 [Concomitant]

REACTIONS (6)
  - EYE SWELLING [None]
  - FATIGUE [None]
  - IMPULSE-CONTROL DISORDER [None]
  - PRODUCTIVE COUGH [None]
  - RASH [None]
  - SOMNOLENCE [None]
